FAERS Safety Report 14603748 (Version 1)
Quarter: 2018Q1

REPORT INFORMATION
  Report Type: Spontaneous
  Country: DE (occurrence: DE)
  Receive Date: 20180306
  Receipt Date: 20180306
  Transmission Date: 20180509
  Serious: Yes (Other)
  Sender: FDA-Public Use
  Company Number: DE-PFIZER INC-2018084356

PATIENT
  Age: 26 Year
  Sex: Female

DRUGS (2)
  1. CLINDAMYCIN HCL [Suspect]
     Active Substance: CLINDAMYCIN HYDROCHLORIDE
     Indication: ERYSIPELAS
     Dosage: 600 MG, 3X/DAY
  2. UNACID (AMPICILLIN SODIUM, SULBACTAM SODIUM) [Suspect]
     Active Substance: AMPICILLIN SODIUM\SULBACTAM SODIUM
     Indication: ERYSIPELAS
     Dosage: 3 G, UNK
     Route: 042

REACTIONS (3)
  - Escherichia test positive [Unknown]
  - Condition aggravated [Unknown]
  - Erysipelas [Unknown]
